FAERS Safety Report 7516255-0 (Version None)
Quarter: 2011Q2

REPORT INFORMATION
  Report Type: 
  Country: None (occurrence: None)
  Receive Date: 20110601
  Receipt Date: 20110523
  Transmission Date: 20111010
  Serious: Yes (Hospitalization, Other)
  Sender: FDA-Public Use
  Company Number: US-AMGEN-QUU427622

PATIENT
  Age: 54 Year
  Sex: Male

DRUGS (3)
  1. ENBREL [Suspect]
     Indication: PSORIASIS
  2. ENBREL [Suspect]
     Indication: PSORIATIC ARTHROPATHY
  3. ENBREL [Suspect]
     Indication: RHEUMATOID ARTHRITIS
     Dates: start: 19980101, end: 20110507

REACTIONS (20)
  - SKIN DISORDER [None]
  - SOMNOLENCE [None]
  - RASH ERYTHEMATOUS [None]
  - TYPE 2 DIABETES MELLITUS [None]
  - NEUROPATHY PERIPHERAL [None]
  - ARRHYTHMIA [None]
  - CARDIAC PACEMAKER INSERTION [None]
  - MYOCARDIAL INFARCTION [None]
  - SLEEP APNOEA SYNDROME [None]
  - SCAR [None]
  - ABDOMINAL DISCOMFORT [None]
  - THIRST [None]
  - CHEST PAIN [None]
  - HEADACHE [None]
  - FATIGUE [None]
  - OSTEOARTHRITIS [None]
  - NAUSEA [None]
  - CORONARY ARTERIAL STENT INSERTION [None]
  - DIARRHOEA [None]
  - ANGINA PECTORIS [None]
